FAERS Safety Report 12071795 (Version 1)
Quarter: 2016Q1

REPORT INFORMATION
  Report Type: Spontaneous
  Country: US (occurrence: US)
  Receive Date: 20160212
  Receipt Date: 20160212
  Transmission Date: 20160526
  Serious: Yes (Hospitalization, Other)
  Sender: FDA-Public Use
  Company Number: US-STRIDES ARCOLAB LIMITED-2015SP002166

PATIENT

DRUGS (4)
  1. SIROLIMUS. [Suspect]
     Active Substance: SIROLIMUS
     Indication: LUNG TRANSPLANT
     Dosage: 1 MG, QD
  2. TACROLIMUS. [Suspect]
     Active Substance: TACROLIMUS
     Dosage: 0.5 MG, BID
  3. TACROLIMUS. [Suspect]
     Active Substance: TACROLIMUS
     Indication: LUNG TRANSPLANT
     Dosage: UNK
  4. MYCOPHENOLATE MOFETIL. [Suspect]
     Active Substance: MYCOPHENOLATE MOFETIL
     Indication: LUNG TRANSPLANT
     Dosage: UNK

REACTIONS (8)
  - Red blood cell schistocytes present [None]
  - Epistaxis [Unknown]
  - Chronic kidney disease [Recovered/Resolved]
  - Gastrointestinal disorder [Unknown]
  - Thrombocytopenia [Recovered/Resolved]
  - Thrombotic microangiopathy [Unknown]
  - Anaemia [Recovered/Resolved]
  - Leukopenia [Unknown]
